FAERS Safety Report 5467834-6 (Version None)
Quarter: 2007Q3

REPORT INFORMATION
  Report Type: 
  Country: None (occurrence: None)
  Receive Date: 20070924
  Receipt Date: 20070914
  Transmission Date: 20080115
  Serious: Yes (Disabling)
  Sender: FDA-Public Use
  Company Number: 2005-01-1853

PATIENT
  Age: 24 Month
  Sex: Male
  Weight: 6 kg

DRUGS (3)
  1. INTRON A [Suspect]
     Indication: HAEMANGIOMA
     Dosage: 1 MIU; QD; SC, 1 MIU; QOD; SC
     Route: 058
     Dates: start: 20020612, end: 20030328
  2. INTRON A [Suspect]
     Indication: HAEMANGIOMA
     Dosage: 1 MIU; QD; SC, 1 MIU; QOD; SC
     Route: 058
     Dates: start: 20030328, end: 20030425
  3. PARACETAMOL [Concomitant]

REACTIONS (1)
  - SPASTIC DIPLEGIA [None]
